FAERS Safety Report 12614141 (Version 1)
Quarter: 2016Q3

REPORT INFORMATION
  Report Type: Spontaneous
  Country: US (occurrence: None)
  Receive Date: 20160801
  Receipt Date: 20160801
  Transmission Date: 20161109
  Serious: Yes (Disabling)
  Sender: FDA-Public Use
  Company Number: None

PATIENT
  Age: 49 Year
  Sex: Female
  Weight: 209 kg

DRUGS (6)
  1. TACROLIMUS. [Suspect]
     Active Substance: TACROLIMUS
     Indication: RENAL TRANSPLANT
     Route: 048
     Dates: start: 20060215, end: 20160730
  2. TACROLIMUS. [Concomitant]
     Active Substance: TACROLIMUS
  3. LABETELOL [Concomitant]
  4. TYLENOL [Concomitant]
     Active Substance: ACETAMINOPHEN
  5. LEGATRIM [Concomitant]
  6. SIROLIMUS. [Concomitant]
     Active Substance: SIROLIMUS

REACTIONS (6)
  - Paraesthesia [None]
  - Tremor [None]
  - Photophobia [None]
  - Disturbance in attention [None]
  - Headache [None]
  - Insomnia [None]

NARRATIVE: CASE EVENT DATE: 20160730
